FAERS Safety Report 13500700 (Version 13)
Quarter: 2018Q4

REPORT INFORMATION
  Report Type: Report from Study
  Country: US (occurrence: US)
  Receive Date: 20170501
  Receipt Date: 20181109
  Transmission Date: 20190204
  Serious: Yes (Hospitalization, Other)
  Sender: FDA-Public Use
  Company Number: US-ACTELION-A-US2017-149701

PATIENT
  Age: 73 Year
  Sex: Male
  Weight: 80.27 kg

DRUGS (6)
  1. VELETRI [Suspect]
     Active Substance: EPOPROSTENOL
     Dosage: 18 NG/KG, PER MIN
     Route: 042
  2. VELETRI [Suspect]
     Active Substance: EPOPROSTENOL
     Indication: PULMONARY ARTERIAL HYPERTENSION
     Dosage: 18 NG/KG, PER MIN
     Route: 042
  3. VELETRI [Suspect]
     Active Substance: EPOPROSTENOL
     Dosage: UNK
     Route: 042
  4. AMLODIPINE [Concomitant]
     Active Substance: AMLODIPINE BESYLATE
  5. COUMADIN [Concomitant]
     Active Substance: WARFARIN SODIUM
  6. BABY ASPIRIN [Suspect]
     Active Substance: ASPIRIN
     Indication: PRODUCT USED FOR UNKNOWN INDICATION
     Route: 048

REACTIONS (21)
  - Heart valve replacement [Unknown]
  - Pneumonia [Unknown]
  - Pain in jaw [Unknown]
  - Cardiac murmur [Unknown]
  - Myalgia [Unknown]
  - Nasal dryness [Unknown]
  - Pulmonary pain [Unknown]
  - Feeling abnormal [Unknown]
  - Contusion [Unknown]
  - Epistaxis [Unknown]
  - Condition aggravated [Unknown]
  - Limb injury [Unknown]
  - Haemorrhage [Unknown]
  - Intervertebral disc compression [Unknown]
  - Pain in extremity [Not Recovered/Not Resolved]
  - Influenza [Unknown]
  - Neoplasm malignant [Unknown]
  - Pancreatic cyst [Unknown]
  - Swelling [Unknown]
  - Muscle strain [Unknown]
  - Product administration error [Recovered/Resolved]
